FAERS Safety Report 9338283 (Version 1)
Quarter: 2013Q2

REPORT INFORMATION
  Report Type: Spontaneous
  Country: US (occurrence: None)
  Receive Date: 20130605
  Receipt Date: 20130605
  Transmission Date: 20140414
  Serious: Yes (Other)
  Sender: FDA-Public Use
  Company Number: None

PATIENT
  Age: 79 Year
  Sex: Female

DRUGS (1)
  1. LIDODERM [Suspect]
     Indication: BACK PAIN
     Dosage: 1 PATCH ON 12 HR OFF 12 HR TOPICALLY TO LOWER BACK.
     Route: 061
     Dates: start: 20130520, end: 20130523

REACTIONS (3)
  - Application site urticaria [None]
  - Application site rash [None]
  - Application site discomfort [None]
